FAERS Safety Report 18144848 (Version 1)
Quarter: 2020Q3

REPORT INFORMATION
  Report Type: Spontaneous
  Country: GB (occurrence: GB)
  Receive Date: 20200813
  Receipt Date: 20200813
  Transmission Date: 20201103
  Serious: Yes (Other)
  Sender: FDA-Public Use
  Company Number: GB-JNJFOC-20200808152

PATIENT
  Age: 28 Year
  Sex: Male
  Weight: 93 kg

DRUGS (1)
  1. REGAINE UNSPECIFIED [Suspect]
     Active Substance: MINOXIDIL
     Indication: ALOPECIA
     Dosage: 1G
     Route: 061
     Dates: start: 20200701, end: 20200706

REACTIONS (3)
  - Testicular pain [Recovered/Resolved]
  - Erectile dysfunction [Recovered/Resolved]
  - Loss of libido [Recovered/Resolved]

NARRATIVE: CASE EVENT DATE: 20200702
